FAERS Safety Report 7362361-3 (Version None)
Quarter: 2011Q1

REPORT INFORMATION
  Report Type: 
  Country: None (occurrence: None)
  Receive Date: 20110318
  Receipt Date: 20110307
  Transmission Date: 20110831
  Serious: Yes (Hospitalization, Other)
  Sender: FDA-Public Use
  Company Number: AU-ABBOTT-11P-008-0708412-00

PATIENT
  Sex: Female
  Weight: 56 kg

DRUGS (9)
  1. KALETRA [Suspect]
     Indication: PROPHYLAXIS AGAINST HIV INFECTION
     Dosage: STANDARD DOSAGE PEP WITH TRUVADA / KALETRA
     Dates: start: 20110221, end: 20110225
  2. NATRILIX [Concomitant]
     Indication: PRODUCT USED FOR UNKNOWN INDICATION
  3. ACTONEL [Concomitant]
     Indication: PRODUCT USED FOR UNKNOWN INDICATION
     Dosage: WEEKLY
  4. FISH OIL [Concomitant]
     Indication: PRODUCT USED FOR UNKNOWN INDICATION
  5. NUROFEN [Concomitant]
     Indication: PRODUCT USED FOR UNKNOWN INDICATION
  6. COVERSYL [Concomitant]
     Indication: HYPERTENSION
     Dosage: 10 MG OD
  7. TRUVADA [Concomitant]
     Indication: PROPHYLAXIS AGAINST HIV INFECTION
     Dates: start: 20110228
  8. KALETRA [Suspect]
     Indication: EXPOSURE TO COMMUNICABLE DISEASE
     Dates: start: 20110227
  9. CALTRATE [Concomitant]
     Indication: PRODUCT USED FOR UNKNOWN INDICATION

REACTIONS (7)
  - VOMITING [None]
  - NAUSEA [None]
  - HEADACHE [None]
  - INAPPROPRIATE ANTIDIURETIC HORMONE SECRETION [None]
  - DIARRHOEA [None]
  - BLOOD PRESSURE INCREASED [None]
  - HYPONATRAEMIA [None]
